FAERS Safety Report 16478543 (Version 1)
Quarter: 2019Q2

REPORT INFORMATION
  Report Type: Spontaneous
  Country: PT (occurrence: PT)
  Receive Date: 20190626
  Receipt Date: 20190626
  Transmission Date: 20190711
  Serious: Yes (Hospitalization, Other)
  Sender: FDA-Public Use
  Company Number: PT-MYLANLABS-2019M1002165

PATIENT
  Age: 59 Year
  Sex: Male

DRUGS (2)
  1. LEVOFLOXACIN. [Suspect]
     Active Substance: LEVOFLOXACIN
     Indication: INFLAMMATORY MARKER INCREASED
  2. LEVOFLOXACIN. [Suspect]
     Active Substance: LEVOFLOXACIN
     Indication: RESPIRATORY DISORDER
     Dosage: UNK

REACTIONS (4)
  - Flushing [Recovering/Resolving]
  - Tendon disorder [Recovering/Resolving]
  - Pain in extremity [Recovering/Resolving]
  - Oedema [Recovering/Resolving]
